FAERS Safety Report 7409721-X (Version None)
Quarter: 2011Q2

REPORT INFORMATION
  Report Type: 
  Country: None (occurrence: None)
  Receive Date: 20110407
  Receipt Date: 20110407
  Transmission Date: 20111010
  Serious: No
  Sender: FDA-Public Use
  Company Number: None

PATIENT
  Age: 52 Year
  Sex: Male

DRUGS (10)
  1. TESTOSTERONE [Concomitant]
  2. DOCUSATE SODIUM [Concomitant]
  3. METFORMIN [Concomitant]
  4. PAROXETINE HCL [Concomitant]
  5. FERROUS SULFATE TAB [Concomitant]
  6. LORAZEPAM [Concomitant]
  7. ASPIRIN [Concomitant]
  8. SIMVASTATIN [Concomitant]
  9. VANCOMYCIN [Suspect]
     Indication: STAPHYLOCOCCAL INFECTION
     Dosage: 1000MG EVERY 8 HOURS IV
     Route: 042
     Dates: start: 20101115, end: 20101211
  10. OXYCODONE HCL [Concomitant]

REACTIONS (4)
  - RASH MACULO-PAPULAR [None]
  - PRURITUS [None]
  - PYREXIA [None]
  - CHILLS [None]
